FAERS Safety Report 25142100 (Version 1)
Quarter: 2025Q1

REPORT INFORMATION
  Report Type: Spontaneous
  Country: US (occurrence: US)
  Receive Date: 20250331
  Receipt Date: 20250331
  Transmission Date: 20250408
  Serious: No
  Sender: LUPIN
  Company Number: US-LUPIN PHARMACEUTICALS INC.-2025-02298

PATIENT

DRUGS (1)
  1. AMLODIPINE BESYLATE [Suspect]
     Active Substance: AMLODIPINE BESYLATE
     Indication: Product used for unknown indication
     Route: 065

REACTIONS (9)
  - Headache [Unknown]
  - Epistaxis [Unknown]
  - Tinnitus [Unknown]
  - Abdominal pain [Unknown]
  - Balance disorder [Unknown]
  - Gait disturbance [Unknown]
  - Pain in extremity [Unknown]
  - Pollakiuria [Unknown]
  - Product substitution issue [Unknown]
